FAERS Safety Report 5249945-3 (Version None)
Quarter: 2007Q1

REPORT INFORMATION
  Report Type: 
  Country: None (occurrence: None)
  Receive Date: 20070228
  Receipt Date: 20060106
  Transmission Date: 20070707
  Serious: No
  Sender: FDA-Public Use
  Company Number: US-GLAXOSMITHKLINE-A0588192A

PATIENT
  Sex: Male

DRUGS (4)
  1. LAMICTAL [Suspect]
     Indication: BIPOLAR DISORDER
     Dosage: 50MG PER DAY
     Route: 048
     Dates: start: 20051208, end: 20051229
  2. SEROQUEL [Suspect]
     Indication: DRUG USE FOR UNKNOWN INDICATION
     Route: 065
  3. PAIN MED [Concomitant]
     Indication: BACK PAIN
  4. ZOLOFT [Concomitant]
     Dosage: 50MG PER DAY
     Dates: start: 20051216

REACTIONS (2)
  - PHARYNGOLARYNGEAL PAIN [None]
  - RASH [None]
